FAERS Safety Report 24395792 (Version 1)
Quarter: 2024Q4

REPORT INFORMATION
  Report Type: Spontaneous
  Country: US (occurrence: US)
  Receive Date: 20241004
  Receipt Date: 20241004
  Transmission Date: 20250114
  Serious: No
  Sender: MERCK
  Company Number: US-009507513-2409USA009255

PATIENT
  Age: 70 Year
  Sex: Female

DRUGS (4)
  1. INVANZ [Suspect]
     Active Substance: ERTAPENEM SODIUM
     Indication: Staphylococcal bacteraemia
     Dosage: UNK, A 6-WEEK REGIMEN VIA A PERIPHERALLY INSERTED CENTRAL CATHETER (PICC) LINE
     Route: 042
  2. INVANZ [Suspect]
     Active Substance: ERTAPENEM SODIUM
     Indication: Endocarditis
  3. CEFAZOLIN [Concomitant]
     Active Substance: CEFAZOLIN
     Indication: Staphylococcal bacteraemia
     Dosage: UNK, A 6-WEEK REGIMEN VIA A PERIPHERALLY INSERTED CENTRAL CATHETER (PICC) LINE
     Route: 042
  4. CEFAZOLIN [Concomitant]
     Active Substance: CEFAZOLIN
     Indication: Endocarditis

REACTIONS (1)
  - Product use in unapproved indication [Unknown]
